FAERS Safety Report 15599922 (Version 3)
Quarter: 2018Q4

REPORT INFORMATION
  Report Type: Spontaneous
  Country: GB (occurrence: GB)
  Receive Date: 20181108
  Receipt Date: 20181203
  Transmission Date: 20190205
  Serious: Yes (Hospitalization, Other)
  Sender: FDA-Public Use
  Company Number: GB-AUROBINDO-AUR-APL-2018-053213

PATIENT
  Age: 14 Year
  Sex: Male

DRUGS (1)
  1. FLUOXETINE [Suspect]
     Active Substance: FLUOXETINE HYDROCHLORIDE
     Indication: DEPRESSION
     Dosage: 1.2 GRAM IN TOTAL (SIXTY 20 MG TABLET
     Route: 048

REACTIONS (14)
  - Generalised tonic-clonic seizure [Recovering/Resolving]
  - Hypokalaemia [Unknown]
  - Fatigue [Recovered/Resolved]
  - Serotonin syndrome [Recovered/Resolved]
  - Rhabdomyolysis [Recovering/Resolving]
  - Intentional overdose [Recovering/Resolving]
  - Pain in extremity [Recovered/Resolved]
  - Tremor [Unknown]
  - Blood creatine phosphokinase increased [Recovered/Resolved]
  - Sinus tachycardia [Unknown]
  - Malaise [Recovered/Resolved]
  - Confusional state [Recovered/Resolved]
  - Overdose [Recovered/Resolved]
  - Heart rate increased [Recovered/Resolved]
